APPROVED DRUG PRODUCT: CALCIPOTRIENE
Active Ingredient: CALCIPOTRIENE
Strength: 0.005%
Dosage Form/Route: CREAM;TOPICAL
Application: A205772 | Product #001 | TE Code: AB
Applicant: GLENMARK SPECIALTY SA
Approved: Jun 9, 2015 | RLD: No | RS: No | Type: RX